FAERS Safety Report 8973971 (Version 1)
Quarter: 2012Q4

REPORT INFORMATION
  Report Type: 
  Country: US (occurrence: US)
  Receive Date: 20121218
  Receipt Date: 20121218
  Transmission Date: 20130627
  Serious: No
  Sender: FDA-Public Use
  Company Number: US-BRISTOL-MYERS SQUIBB COMPANY-16394777

PATIENT
  Age: 4 None
  Sex: Female

DRUGS (1)
  1. ABILIFY [Suspect]
     Dosage: Decreased to 1mg

REACTIONS (2)
  - Mental impairment [Recovering/Resolving]
  - Memory impairment [Recovering/Resolving]
